FAERS Safety Report 11120834 (Version 4)
Quarter: 2015Q3

REPORT INFORMATION
  Report Type: Report from Study
  Country: DE (occurrence: DE)
  Receive Date: 20150519
  Receipt Date: 20150722
  Transmission Date: 20151125
  Serious: Yes (Hospitalization)
  Sender: FDA-Public Use
  Company Number: DE-PFIZER INC-2015157851

PATIENT
  Age: 49 Year
  Sex: Male
  Weight: 73 kg

DRUGS (10)
  1. CLEXANE [Concomitant]
     Active Substance: ENOXAPARIN SODIUM
     Dosage: 80 MG, DAILY
     Dates: start: 201501
  2. CISPLATIN. [Suspect]
     Active Substance: CISPLATIN
     Dosage: 197 MG, UNK
     Dates: start: 20150329, end: 20150425
  3. DEXAMETHASONE. [Suspect]
     Active Substance: DEXAMETHASONE
     Dosage: 40 MG, UNK
     Dates: start: 20150329, end: 20150425
  4. CYTARABIN [Suspect]
     Active Substance: CYTARABINE
     Dosage: 3940 MG, UNK
     Dates: start: 20150330, end: 20150426
  5. TEMSIROLIMUS [Suspect]
     Active Substance: TEMSIROLIMUS
     Dosage: 25 MG, PER INFUSION ON DAY 1 AND DAY 8
     Dates: start: 20150327
  6. RITUXIMAB [Suspect]
     Active Substance: RITUXIMAB
     Dosage: 740 MG, UNK
     Dates: start: 20150328, end: 20150424
  7. IMODIUM [Concomitant]
     Active Substance: LOPERAMIDE HYDROCHLORIDE
     Dosage: 2 MG, AS NEEDED
  8. PANTOZOL [Concomitant]
     Active Substance: PANTOPRAZOLE SODIUM
     Dosage: 40 MG, DAILY
     Dates: start: 201408
  9. VOMEX A [Concomitant]
     Active Substance: DIMENHYDRINATE
     Dosage: 50 MG, AS NEEDED
  10. MCP [Concomitant]
     Active Substance: METOCLOPRAMIDE HYDROCHLORIDE
     Dosage: 30 MG, DAILY
     Dates: start: 2014

REACTIONS (1)
  - Upper gastrointestinal haemorrhage [Recovered/Resolved]

NARRATIVE: CASE EVENT DATE: 20150505
